FAERS Safety Report 10207016 (Version 1)
Quarter: 2014Q2

REPORT INFORMATION
  Report Type: Spontaneous
  Country: FR (occurrence: FR)
  Receive Date: 20140530
  Receipt Date: 20140530
  Transmission Date: 20141212
  Serious: Yes (Other)
  Sender: FDA-Public Use
  Company Number: FR-JNJFOC-20140515885

PATIENT
  Age: 45 Year
  Sex: Female

DRUGS (4)
  1. REMICADE [Suspect]
     Indication: PROCTITIS HAEMORRHAGIC
     Route: 042
     Dates: start: 201205
  2. REMICADE [Suspect]
     Indication: PROCTITIS HAEMORRHAGIC
     Route: 042
     Dates: start: 20100212
  3. REMICADE [Suspect]
     Indication: PROCTITIS HAEMORRHAGIC
     Route: 042
     Dates: start: 20130816
  4. REMICADE [Suspect]
     Indication: PROCTITIS HAEMORRHAGIC
     Route: 042
     Dates: start: 2007, end: 200907

REACTIONS (2)
  - Rhinitis [Recovered/Resolved]
  - Nasal disorder [Recovered/Resolved]
